FAERS Safety Report 8793855 (Version 4)
Quarter: 2013Q1

REPORT INFORMATION
  Report Type: Report from Study
  Country: FR (occurrence: FR)
  Receive Date: 20120917
  Receipt Date: 20130206
  Transmission Date: 20140127
  Serious: Yes (Other)
  Sender: FDA-Public Use
  Company Number: FR-ROCHE-1115792

PATIENT
  Age: 57 Year
  Sex: Female
  Weight: 75 kg

DRUGS (10)
  1. PEG-INTERFERON ALFA 2A [Suspect]
     Indication: HEPATITIS B
     Route: 050
     Dates: start: 20110524
  2. PEG-INTERFERON ALFA 2A [Suspect]
     Route: 050
     Dates: start: 20120626
  3. BARACLUDE [Suspect]
     Indication: HEPATITIS B
     Route: 050
     Dates: start: 20121014
  4. IBUPROFENE [Suspect]
     Route: 065
     Dates: start: 20120626
  5. AVLOCARDYL [Concomitant]
     Indication: HYPERTENSION
     Route: 065
     Dates: start: 20110524
  6. VALSARTAN [Concomitant]
     Indication: HYPERTENSION
     Route: 065
     Dates: start: 20110524
  7. NOVORAPID [Concomitant]
     Indication: DIABETES MELLITUS
     Route: 065
     Dates: start: 2009
  8. LANTUS [Concomitant]
     Indication: DIABETES MELLITUS
     Route: 065
     Dates: start: 2009
  9. PARACETAMOL [Concomitant]
     Route: 065
     Dates: start: 20120626
  10. ADVIL [Concomitant]
     Route: 065
     Dates: start: 20120626

REACTIONS (1)
  - Gamma-glutamyltransferase increased [Unknown]
